FAERS Safety Report 10687859 (Version 1)
Quarter: 2014Q4

REPORT INFORMATION
  Report Type: Spontaneous
  Country: US (occurrence: None)
  Receive Date: 20141231
  Receipt Date: 20141231
  Transmission Date: 20150529
  Serious: Yes (Other)
  Sender: FDA-Public Use
  Company Number: None

PATIENT
  Age: 61 Year
  Sex: Male
  Weight: 65.77 kg

DRUGS (1)
  1. FINASTERIDE. [Suspect]
     Active Substance: FINASTERIDE
     Indication: PROSTATITIS
     Dosage: 1
     Route: 048
     Dates: start: 20141129, end: 20141225

REACTIONS (10)
  - Pruritus [None]
  - Scratch [None]
  - Photophobia [None]
  - Nasopharyngitis [None]
  - Rash [None]
  - Feeling abnormal [None]
  - Screaming [None]
  - Urticaria [None]
  - Paraesthesia [None]
  - Hypopnoea [None]
